FAERS Safety Report 6303000-X (Version None)
Quarter: 2009Q3

REPORT INFORMATION
  Report Type: 
  Country: None (occurrence: None)
  Receive Date: 20090810
  Receipt Date: 20090731
  Transmission Date: 20100115
  Serious: Yes (Other)
  Sender: FDA-Public Use
  Company Number: JP-ABBOTT-09P-087-0573621-00

PATIENT
  Sex: Female

DRUGS (9)
  1. PRERAN [Suspect]
     Indication: HYPERTENSION
     Route: 048
     Dates: start: 20090415, end: 20090425
  2. ASPIRIN [Concomitant]
     Indication: MYOCARDIAL ISCHAEMIA
     Route: 048
  3. MEVALOTIN [Concomitant]
     Indication: DYSLIPIDAEMIA
     Route: 048
  4. DOPS [Concomitant]
     Indication: ORTHOSTATIC HYPOTENSION
     Route: 048
  5. METLIGINE [Concomitant]
     Indication: ORTHOSTATIC HYPOTENSION
     Route: 048
  6. SEDIEL [Concomitant]
     Indication: ANXIETY DISORDER
     Route: 048
  7. EPADEL [Concomitant]
     Indication: DYSLIPIDAEMIA
     Route: 048
  8. NOVORAPID [Concomitant]
     Indication: TYPE 2 DIABETES MELLITUS
     Route: 058
  9. LANTUS [Concomitant]
     Indication: TYPE 2 DIABETES MELLITUS
     Route: 058

REACTIONS (1)
  - HYPOGLYCAEMIA [None]
